FAERS Safety Report 4939267-X (Version None)
Quarter: 2006Q1

REPORT INFORMATION
  Report Type: 
  Country: None (occurrence: None)
  Receive Date: 20060306
  Receipt Date: 20060221
  Transmission Date: 20060701
  Serious: Yes (Other)
  Sender: FDA-Public Use
  Company Number: 2006017769

PATIENT
  Age: 42 Year
  Sex: Female

DRUGS (13)
  1. LYRICA [Suspect]
     Indication: NEURALGIA
     Dosage: 150 MG (75 MG, 2 IN 1 D), ORAL
     Route: 048
     Dates: start: 20060104
  2. ALL OTHER THERAPEUTIC PRODUCTS (ALL OTHER THERAPEUTIC PRODUCTS) [Concomitant]
  3. MARCAINE [Concomitant]
  4. LORAZEPAM [Concomitant]
  5. SLOW-K [Concomitant]
  6. CITALOPRAM (CITALOPRAM) [Concomitant]
  7. DIAZEPAM [Concomitant]
  8. LUPRON - SLOW RELEASE ^ TAP ^  (LEUPRORELIN ACETATE) [Concomitant]
  9. OXYCONTIN [Concomitant]
  10. MODURET (AMILORIDE HYDROCHLORIDE, HYDROCHLOROTHIAZIDE) [Concomitant]
  11. TRINALIN (AZATADINE MALEATE, PSEUDOEPHEDRINE SULFATE) [Concomitant]
  12. VENTOLIN [Concomitant]
  13. DURAGESIC-100 [Concomitant]

REACTIONS (3)
  - ACCIDENT AT HOME [None]
  - SENSORY LOSS [None]
  - THERMAL BURN [None]
